FAERS Safety Report 23744594 (Version 1)
Quarter: 2024Q2

REPORT INFORMATION
  Report Type: Spontaneous
  Country: US (occurrence: US)
  Receive Date: 20240415
  Receipt Date: 20240415
  Transmission Date: 20240716
  Serious: Yes (Death, Hospitalization, Other)
  Sender: FDA-Public Use
  Company Number: US-AMGEN-USASP2024071349

PATIENT

DRUGS (3)
  1. BEVACIZUMAB [Suspect]
     Active Substance: BEVACIZUMAB
     Indication: Glioma
     Dosage: UNK
     Route: 065
  2. IVOSIDENIB [Concomitant]
     Active Substance: IVOSIDENIB
     Indication: Astrocytoma
     Dosage: 500 MILLIGRAM, QD
     Route: 048
  3. IVOSIDENIB [Concomitant]
     Active Substance: IVOSIDENIB
     Indication: Oligodendroglioma
     Dosage: 250 MILLIGRAM, QD
     Route: 048

REACTIONS (4)
  - Death [Fatal]
  - Glioma [Fatal]
  - Pancreatitis chronic [Unknown]
  - Unevaluable event [Unknown]
